FAERS Safety Report 25023744 (Version 2)
Quarter: 2025Q1

REPORT INFORMATION
  Report Type: Report from Study
  Country: US (occurrence: US)
  Receive Date: 20250228
  Receipt Date: 20250305
  Transmission Date: 20250409
  Serious: Yes (Hospitalization)
  Sender: GILEAD
  Company Number: US-GILEAD-2025-0705315

PATIENT
  Sex: Male

DRUGS (9)
  1. AZTREONAM LYSINE [Suspect]
     Active Substance: AZTREONAM LYSINE
     Indication: Cystic fibrosis
     Dosage: RECONSTITUTE WITH 1ML SUPPLIED DILUENT + NEBULIZE 3 TIMES DAILY FOR 28 DAYS ON, 28 DAYS OFF. (FOLLOW
     Route: 055
  2. LISINOPRIL [Concomitant]
     Active Substance: LISINOPRIL
  3. POLYETHYLENE GLYCOL 3350 [Concomitant]
     Active Substance: POLYETHYLENE GLYCOL 3350
  4. ALBUTEROL SULFATE [Concomitant]
     Active Substance: ALBUTEROL SULFATE
  5. TRIKAFTA [Concomitant]
     Active Substance: ELEXACAFTOR\IVACAFTOR\TEZACAFTOR
     Indication: Product used for unknown indication
  6. SODIUM CHLORIDE [Concomitant]
     Active Substance: SODIUM CHLORIDE
  7. FLUTICASONE PROPIONATE [Concomitant]
     Active Substance: FLUTICASONE PROPIONATE
  8. LANTUS [Concomitant]
     Active Substance: INSULIN GLARGINE
  9. FIASP [Concomitant]
     Active Substance: INSULIN ASPART

REACTIONS (1)
  - Gastrointestinal disorder [Unknown]
